FAERS Safety Report 5675615-3 (Version None)
Quarter: 2008Q1

REPORT INFORMATION
  Report Type: 
  Country: None (occurrence: None)
  Receive Date: 20080321
  Receipt Date: 20080311
  Transmission Date: 20080703
  Serious: Yes (Death, Hospitalization)
  Sender: FDA-Public Use
  Company Number: JP-JNJFOC-20080302310

PATIENT
  Sex: Female

DRUGS (15)
  1. TOPINA [Suspect]
     Route: 048
  2. TOPINA [Suspect]
     Route: 048
  3. TOPINA [Suspect]
     Route: 048
  4. TOPINA [Suspect]
     Route: 048
  5. TOPINA [Suspect]
     Indication: EPILEPSY
     Route: 048
  6. DEPAKENE [Concomitant]
     Route: 048
  7. DEPAKENE [Concomitant]
     Route: 048
  8. MAGNESIUM OXIDE [Concomitant]
     Route: 048
  9. NORVASC [Concomitant]
     Route: 048
  10. SYMMETREL [Concomitant]
     Route: 048
  11. NEODOPASOL [Concomitant]
     Route: 048
  12. CARBAMAZEPINE [Concomitant]
  13. CARBAMAZEPINE [Concomitant]
     Indication: EPILEPSY
  14. GABAPENTIN [Concomitant]
  15. GABAPENTIN [Concomitant]
     Indication: EPILEPSY

REACTIONS (7)
  - ALTERED STATE OF CONSCIOUSNESS [None]
  - ANOREXIA [None]
  - DIABETIC HYPEROSMOLAR COMA [None]
  - EPILEPSY [None]
  - RENAL TUBULAR ACIDOSIS [None]
  - TREMOR [None]
  - URINARY TRACT INFECTION [None]
